FAERS Safety Report 22288430 (Version 1)
Quarter: 2023Q2

REPORT INFORMATION
  Report Type: Spontaneous
  Country: AU (occurrence: None)
  Receive Date: 20230505
  Receipt Date: 20230505
  Transmission Date: 20230722
  Serious: Yes (Other)
  Sender: FDA-Public Use
  Company Number: 2023A099608

PATIENT
  Sex: Female

DRUGS (6)
  1. NEXIUM [Suspect]
     Active Substance: ESOMEPRAZOLE MAGNESIUM
  2. NUCALA [Suspect]
     Active Substance: MEPOLIZUMAB
  3. ALBUTEROL [Suspect]
     Active Substance: ALBUTEROL
  4. PREDNISONE [Suspect]
     Active Substance: PREDNISONE
  5. TIOTROPIUM [Suspect]
     Active Substance: TIOTROPIUM
  6. SULFAMETHOXAZOLE\TRIMETHOPRIM [Suspect]
     Active Substance: SULFAMETHOXAZOLE\TRIMETHOPRIM

REACTIONS (3)
  - Eosinophilic granulomatosis with polyangiitis [Unknown]
  - Asthma [Unknown]
  - Condition aggravated [Unknown]
